FAERS Safety Report 5612481-6 (Version None)
Quarter: 2008Q1

REPORT INFORMATION
  Report Type: 
  Country: None (occurrence: None)
  Receive Date: 20080204
  Receipt Date: 20080121
  Transmission Date: 20080703
  Serious: Yes (Other)
  Sender: FDA-Public Use
  Company Number: GB-ROCHE-542600

PATIENT
  Age: 27 Year
  Sex: Male

DRUGS (3)
  1. FUZEON [Suspect]
     Route: 058
  2. TIPRANAVIR [Suspect]
     Route: 065
  3. RITONAVIR [Suspect]
     Route: 065

REACTIONS (4)
  - CONTUSION [None]
  - HAEMARTHROSIS [None]
  - HAEMATOMA [None]
  - SOFT TISSUE HAEMORRHAGE [None]
